FAERS Safety Report 5840238-X (Version None)
Quarter: 2008Q3

REPORT INFORMATION
  Report Type: 
  Country: None (occurrence: None)
  Receive Date: 20080730
  Receipt Date: 20080410
  Transmission Date: 20090109
  Serious: No
  Sender: FDA-Public Use
  Company Number: 2008-US-000297

PATIENT
  Age: 13 Year
  Sex: Male
  Weight: 29.7 kg

DRUGS (3)
  1. INCRELEX [Suspect]
     Dosage: 0.04 MG, BID ; 0.08 MG, BID, SUBCUTANEOUS ; 0.12 MG, BID, SUBCUTANEOUS
     Route: 058
     Dates: start: 20080214, end: 20080220
  2. INCRELEX [Suspect]
     Dosage: 0.04 MG, BID ; 0.08 MG, BID, SUBCUTANEOUS ; 0.12 MG, BID, SUBCUTANEOUS
     Route: 058
     Dates: start: 20080221, end: 20080305
  3. INCRELEX [Suspect]
     Dosage: 0.04 MG, BID ; 0.08 MG, BID, SUBCUTANEOUS ; 0.12 MG, BID, SUBCUTANEOUS
     Route: 058
     Dates: start: 20080306, end: 20080318

REACTIONS (2)
  - GYNAECOMASTIA [None]
  - OEDEMA PERIPHERAL [None]
